FAERS Safety Report 8414737-0 (Version None)
Quarter: 2012Q2

REPORT INFORMATION
  Report Type: 
  Country: None (occurrence: None)
  Receive Date: 20120605
  Receipt Date: 20120530
  Transmission Date: 20120825
  Serious: Yes (Hospitalization)
  Sender: FDA-Public Use
  Company Number: US-BAYER-2012-007428

PATIENT
  Age: 36 Year
  Sex: Female
  Weight: 95.238 kg

DRUGS (4)
  1. YAZ [Suspect]
     Indication: CONTRACEPTION
     Dosage: UNK
     Route: 048
     Dates: start: 20071101, end: 20101201
  2. DILANTIN [Concomitant]
     Indication: CONVULSION
     Dosage: UNK
  3. SERTRALINE HYDROCHLORIDE [Concomitant]
     Dosage: 100 MG, UNK
     Dates: start: 20100309, end: 20110107
  4. HYDROXYZINE [Concomitant]
     Dosage: 25 MG, UNK
     Dates: start: 20100311, end: 20110218

REACTIONS (6)
  - DEEP VEIN THROMBOSIS [None]
  - EMOTIONAL DISTRESS [None]
  - PAIN [None]
  - INFARCTION [None]
  - PULMONARY EMBOLISM [None]
  - MENTAL DISORDER [None]
